FAERS Safety Report 5897815-X (Version None)
Quarter: 2008Q3

REPORT INFORMATION
  Report Type: 
  Country: None (occurrence: None)
  Receive Date: 20080924
  Receipt Date: 20080924
  Transmission Date: 20090109
  Serious: Yes (Other)
  Sender: FDA-Public Use
  Company Number: None

PATIENT
  Age: 44 Year
  Sex: Female
  Weight: 90.7194 kg

DRUGS (1)
  1. MIRENA [Suspect]
     Indication: MENORRHAGIA
     Dosage: 1 EVERY 5 YEARS
     Dates: start: 20080714, end: 20080824

REACTIONS (6)
  - ASTHENIA [None]
  - HAEMORRHAGE [None]
  - MUSCLE SPASMS [None]
  - MYALGIA [None]
  - SWELLING [None]
  - THYROID DISORDER [None]
